FAERS Safety Report 6245277-5 (Version None)
Quarter: 2009Q2

REPORT INFORMATION
  Report Type: 
  Country: None (occurrence: None)
  Receive Date: 20090625
  Receipt Date: 20090617
  Transmission Date: 20091009
  Serious: Yes (Hospitalization, Disabling, Congenital Anomaly)
  Sender: FDA-Public Use
  Company Number: BE-MERCK-0703BEL00017B1

PATIENT
  Sex: Male
  Weight: 3 kg

DRUGS (11)
  1. FOSAMAX [Suspect]
     Indication: STRESS FRACTURE
     Route: 064
     Dates: start: 20070101, end: 20070316
  2. ASCORBIC ACID [Concomitant]
     Indication: STRESS FRACTURE
     Route: 064
     Dates: end: 20070316
  3. CALCIUM (UNSPECIFIED) [Concomitant]
     Indication: STRESS FRACTURE
     Route: 064
     Dates: end: 20070316
  4. VITAMIN D (UNSPECIFIED) [Concomitant]
     Route: 064
     Dates: end: 20070316
  5. MAGNESIUM OXIDE [Concomitant]
     Route: 064
     Dates: start: 20070723, end: 20071001
  6. PROGESTERONE [Concomitant]
     Route: 064
     Dates: start: 20070723, end: 20071001
  7. FOSFOMYCIN TROMETHAMINE [Concomitant]
     Route: 064
     Dates: start: 20070723, end: 20070723
  8. MICONAZOLE NITRATE [Concomitant]
     Route: 064
     Dates: start: 20070817
  9. ZINC (UNSPECIFIED) [Concomitant]
     Route: 064
     Dates: end: 20070316
  10. FLUOXETINE HYDROCHLORIDE [Concomitant]
     Route: 064
     Dates: end: 20070316
  11. MINERALS (UNSPECIFIED) AND VITAMINS (UNSPECIFIED) [Concomitant]
     Route: 064
     Dates: end: 20070316

REACTIONS (9)
  - EAR INFECTION [None]
  - FEEDING DISORDER NEONATAL [None]
  - GROWTH RETARDATION [None]
  - MENTAL RETARDATION [None]
  - MICROCEPHALY [None]
  - PYELOPLASTY [None]
  - STRABISMUS [None]
  - URINARY TRACT INFECTION [None]
  - VOMITING [None]
